FAERS Safety Report 6004802-X (Version None)
Quarter: 2008Q4

REPORT INFORMATION
  Report Type: 
  Country: None (occurrence: None)
  Receive Date: 20081215
  Receipt Date: 20081105
  Transmission Date: 20090506
  Serious: Yes (Other)
  Sender: FDA-Public Use
  Company Number: 08-595

PATIENT
  Age: 78 Year
  Sex: Female

DRUGS (8)
  1. ALEVE [Suspect]
     Indication: ARTHRALGIA
     Dosage: 440 MG, DAILY, ORAL
     Route: 048
     Dates: start: 20081023
  2. ALEVE [Suspect]
     Indication: MUSCULOSKELETAL PAIN
     Dosage: 440 MG, DAILY, ORAL
     Route: 048
     Dates: start: 20081023
  3. ASPIRIN [Concomitant]
  4. BAYER REGIMEN ENTERIC ASPIRIN [Concomitant]
  5. TYLENOL (CAPLET) [Concomitant]
  6. HIGH BLOOD PRESSURE MEDICATION [Concomitant]
  7. HIGH CHOLESTEROL MEDICATION [Concomitant]
  8. ADVIL LIQUI-GELS [Concomitant]

REACTIONS (1)
  - HYPERSENSITIVITY [None]
